FAERS Safety Report 6822721-3 (Version None)
Quarter: 2010Q2

REPORT INFORMATION
  Report Type: 
  Country: None (occurrence: None)
  Receive Date: 20100318
  Receipt Date: 20100318
  Transmission Date: 20101027
  Serious: Yes (Hospitalization)
  Sender: FDA-Public Use
  Company Number: None

PATIENT
  Age: 79 Year
  Sex: Male
  Weight: 66 kg

DRUGS (1)
  1. BARIUM SULFATE [Suspect]
     Indication: COMPUTERISED TOMOGRAM
     Dosage: ONCE IV
     Route: 042
     Dates: start: 20090827, end: 20090827

REACTIONS (4)
  - CONTRAST MEDIA REACTION [None]
  - HAEMODIALYSIS [None]
  - NEPHROPATHY [None]
  - RENAL FAILURE ACUTE [None]
